FAERS Safety Report 11062594 (Version 1)
Quarter: 2015Q2

REPORT INFORMATION
  Report Type: Spontaneous
  Country: US (occurrence: US)
  Receive Date: 20150424
  Receipt Date: 20150424
  Transmission Date: 20150821
  Serious: Yes (Other)
  Sender: FDA-Public Use
  Company Number: US-SA-2015SA053042

PATIENT
  Sex: Male
  Weight: 95 kg

DRUGS (1)
  1. PLAVIX [Suspect]
     Active Substance: CLOPIDOGREL BISULFATE
     Route: 065
     Dates: start: 2012, end: 2015

REACTIONS (4)
  - Cerebrovascular accident [Unknown]
  - Depression [Unknown]
  - Lethargy [Unknown]
  - Atrial fibrillation [Unknown]
